FAERS Safety Report 4357433-1 (Version None)
Quarter: 2004Q2

REPORT INFORMATION
  Report Type: 
  Country: None (occurrence: None)
  Receive Date: 20040510
  Receipt Date: 20040423
  Transmission Date: 20050107
  Serious: No
  Sender: FDA-Public Use
  Company Number: 2004AP02268

PATIENT
  Age: 60 Year
  Sex: Male

DRUGS (14)
  1. IRESSA [Suspect]
     Indication: NON-SMALL CELL LUNG CANCER
     Dosage: 250 MG DAILY PO
     Route: 048
     Dates: start: 20031006
  2. MS CONTIN [Concomitant]
  3. MAGNESIUM [Concomitant]
  4. MORPHINE HYDROCHLORIDE [Concomitant]
  5. PURSENNID [Concomitant]
  6. INFLUENZA VACCINE [Concomitant]
  7. MUCOSTA [Concomitant]
  8. HUMACART-N [Concomitant]
  9. LC B [Concomitant]
  10. PACLITAXEL [Concomitant]
  11. PARAPLATIN [Concomitant]
  12. GEMZAL [Concomitant]
  13. NAVELBINE ^ASTRA MEDICA^ [Concomitant]
  14. TAXOTERE [Concomitant]

REACTIONS (7)
  - ENTEROCOLITIS [None]
  - GASTRITIS [None]
  - METASTASES TO BONE [None]
  - METASTASES TO CHEST WALL [None]
  - NAIL DISORDER [None]
  - PNEUMONIA [None]
  - RASH [None]
